FAERS Safety Report 5008521-8 (Version None)
Quarter: 2006Q2

REPORT INFORMATION
  Report Type: 
  Country: None (occurrence: None)
  Receive Date: 20060518
  Receipt Date: 20060503
  Transmission Date: 20061013
  Serious: Yes (Death)
  Sender: FDA-Public Use
  Company Number: 200605IM000272

PATIENT
  Age: 62 Year
  Sex: Male

DRUGS (10)
  1. ACTIMMUNE [Suspect]
     Indication: ADENOCARCINOMA PANCREAS
     Dosage: SEE IMAGE
     Dates: start: 19930701
  2. ACTIMMUNE [Suspect]
     Indication: ADENOCARCINOMA PANCREAS
     Dosage: SEE IMAGE
     Dates: start: 19930801
  3. PROLEUKIN [Concomitant]
  4. LIPIODOL [Concomitant]
  5. UROGRAPHIN 58% [Concomitant]
  6. MITOMYCIN [Concomitant]
  7. CARBOPLATIN [Concomitant]
  8. EPIRUBICIN [Concomitant]
  9. FLUOROURACIL [Concomitant]
  10. LEUKOVORIN [Concomitant]

REACTIONS (1)
  - PANCREATECTOMY [None]
